FAERS Safety Report 4798893-1 (Version None)
Quarter: 2005Q4

REPORT INFORMATION
  Report Type: 
  Country: None (occurrence: None)
  Receive Date: 20051014
  Receipt Date: 20050801
  Transmission Date: 20060501
  Serious: Yes (Hospitalization)
  Sender: FDA-Public Use
  Company Number: 2005AP04226

PATIENT
  Age: 23158 Day
  Sex: Female
  Weight: 37.2 kg

DRUGS (7)
  1. IRESSA [Suspect]
     Indication: LUNG ADENOCARCINOMA STAGE IV
     Route: 048
     Dates: start: 20050610, end: 20050726
  2. RINDERON [Suspect]
     Indication: METASTASES TO CENTRAL NERVOUS SYSTEM
     Route: 048
     Dates: start: 20050620
  3. SELBEX [Concomitant]
     Indication: GASTRITIS
     Route: 048
     Dates: start: 20050608
  4. BIOFERMIN [Concomitant]
     Indication: GASTROINTESTINAL DISORDER
     Route: 048
     Dates: start: 20050620
  5. ZANTAC [Concomitant]
     Indication: GASTRITIS
     Route: 048
     Dates: start: 20050620
  6. VOLTAREN [Concomitant]
     Indication: PAIN
     Route: 048
     Dates: start: 20050726
  7. RADIATION THERAPY [Concomitant]
     Dates: start: 20050624, end: 20050707

REACTIONS (16)
  - ALANINE AMINOTRANSFERASE INCREASED [None]
  - ANOREXIA [None]
  - ASPARTATE AMINOTRANSFERASE INCREASED [None]
  - DECREASED APPETITE [None]
  - DIARRHOEA [None]
  - INTERSTITIAL LUNG DISEASE [None]
  - LYMPHANGIOSIS CARCINOMATOSA [None]
  - MALAISE [None]
  - MALNUTRITION [None]
  - MUSCULAR WEAKNESS [None]
  - PNEUMOCYSTIS JIROVECI PNEUMONIA [None]
  - POLLAKIURIA [None]
  - RASH [None]
  - STOMATITIS [None]
  - TONGUE COATED [None]
  - VOMITING [None]
